FAERS Safety Report 9519384 (Version 1)
Quarter: 2013Q1

REPORT INFORMATION
  Report Type: Spontaneous
  Country: US (occurrence: None)
  Receive Date: 20130305
  Receipt Date: 20130305
  Transmission Date: 20140127
  Serious: Yes (Other)
  Sender: FDA-Public Use
  Company Number: 163-21880-12110575

PATIENT
  Age: 84 Year
  Sex: Female
  Weight: 51.71 kg

DRUGS (3)
  1. REVLIMID [Suspect]
     Indication: PLASMA CELL MYELOMA
     Dosage: 5 MG, 21 IN 21 D, PO
     Route: 048
     Dates: start: 20101110
  2. ASPIRIN (ACETYLSALICYLIC ACID) (UNKNOWN) (ACETYLSALICYLIC ACID) [Concomitant]
  3. DIOVAN (VALSARTAN) (UNKNOWN) [Concomitant]

REACTIONS (7)
  - Amnesia [None]
  - Dysarthria [None]
  - Asthenia [None]
  - Fatigue [None]
  - Pruritus [None]
  - Diarrhoea [None]
  - Contusion [None]
